FAERS Safety Report 5091325-8 (Version None)
Quarter: 2006Q3

REPORT INFORMATION
  Report Type: 
  Country: None (occurrence: None)
  Receive Date: 20060824
  Receipt Date: 20060816
  Transmission Date: 20061208
  Serious: Yes (Life-Threatening, Hospitalization)
  Sender: FDA-Public Use
  Company Number: US-2006-004003

PATIENT
  Age: 63 Year
  Sex: Female
  Weight: 81.6 kg

DRUGS (1)
  1. ULTRAVIST (PHARMACY BULK) [Suspect]
     Indication: COMPUTERISED TOMOGRAM ABDOMEN
     Dosage: 100 MI, 1 DOSE; INTRAVENOUS
     Route: 042
     Dates: start: 20060221, end: 20060221

REACTIONS (21)
  - ACINETOBACTER INFECTION [None]
  - ANAPHYLACTIC REACTION [None]
  - ANOXIC ENCEPHALOPATHY [None]
  - ATELECTASIS [None]
  - BRONCHOSPASM [None]
  - CARDIAC ARREST [None]
  - COMA [None]
  - CONTRAST MEDIA REACTION [None]
  - CORONARY ARTERY DISEASE [None]
  - DIABETES MELLITUS INSULIN-DEPENDENT [None]
  - ELECTROMECHANICAL DISSOCIATION [None]
  - HYPERTENSION [None]
  - HYPOTENSION [None]
  - PARALYSIS FLACCID [None]
  - RESPIRATORY ARREST [None]
  - RESPIRATORY FAILURE [None]
  - STAPHYLOCOCCAL INFECTION [None]
  - TACHYPNOEA [None]
  - TRACHEOBRONCHITIS [None]
  - VENTRICULAR HYPERTROPHY [None]
  - WHEEZING [None]
